FAERS Safety Report 9769314 (Version 2)
Quarter: 2013Q4

REPORT INFORMATION
  Report Type: Spontaneous
  Country: US (occurrence: None)
  Receive Date: 20131129
  Receipt Date: 20131224
  Transmission Date: 20140711
  Serious: Yes (Other)
  Sender: FDA-Public Use
  Company Number: 44612

PATIENT
  Age: 64 Year
  Sex: Female

DRUGS (8)
  1. GLASSIA [Suspect]
     Indication: ALPHA-1 ANTI-TRYPSIN DEFICIENCY
     Route: 042
     Dates: start: 201309
  2. ADVAIR [Concomitant]
  3. PRO-AIR INHALER [Concomitant]
  4. HCT2 25 MG [Concomitant]
  5. LEVOTHYROXINE [Concomitant]
  6. CITALOPRAM [Concomitant]
  7. BACLOFEN [Concomitant]
  8. REBIF [Concomitant]

REACTIONS (4)
  - Cough [None]
  - Hepatic cirrhosis [None]
  - Headache [None]
  - Stress [None]
